FAERS Safety Report 17609980 (Version 2)
Quarter: 2020Q2

REPORT INFORMATION
  Report Type: Spontaneous
  Country: CA (occurrence: CA)
  Receive Date: 20200401
  Receipt Date: 20200605
  Transmission Date: 20200713
  Serious: Yes (Hospitalization)
  Sender: FDA-Public Use
  Company Number: CA-PFIZER INC-2020114891

PATIENT
  Age: 66 Year
  Sex: Male

DRUGS (1)
  1. ZOLOFT [Suspect]
     Active Substance: SERTRALINE HYDROCHLORIDE
     Dosage: 50 MG, 1X/DAY
     Dates: start: 202002

REACTIONS (4)
  - Penile infection [Recovered/Resolved]
  - Penile pain [Recovered/Resolved]
  - COVID-19 [Unknown]
  - Penile erythema [Recovered/Resolved]
